FAERS Safety Report 8597610-7 (Version None)
Quarter: 2012Q3

REPORT INFORMATION
  Report Type: 
  Country: None (occurrence: None)
  Receive Date: 20120816
  Receipt Date: 20120808
  Transmission Date: 20120928
  Serious: No
  Sender: FDA-Public Use
  Company Number: US-BAYER-2012-081524

PATIENT
  Sex: Female

DRUGS (1)
  1. MIRENA [Suspect]
     Indication: CONTRACEPTION
     Dosage: 20 MCG/24HR, CONT
     Route: 015
     Dates: start: 20120806, end: 20120806

REACTIONS (5)
  - DIZZINESS [None]
  - NAUSEA [None]
  - PROCEDURAL PAIN [None]
  - HYPERHIDROSIS [None]
  - PRESYNCOPE [None]
